FAERS Safety Report 13002106 (Version 3)
Quarter: 2017Q1

REPORT INFORMATION
  Report Type: Report from Study
  Country: BR (occurrence: BR)
  Receive Date: 20161206
  Receipt Date: 20170116
  Transmission Date: 20170428
  Serious: Yes (Other)
  Sender: FDA-Public Use
  Company Number: PHHY2016BR166405

PATIENT
  Sex: Female
  Weight: 100 kg

DRUGS (2)
  1. SERTRALINE [Concomitant]
     Active Substance: SERTRALINE HYDROCHLORIDE
     Indication: DEPRESSION
     Dosage: 50 MG, BID, IN THE MORNING
     Route: 048
  2. TEGRETOL [Suspect]
     Active Substance: CARBAMAZEPINE
     Indication: TRIGEMINAL NEURALGIA
     Dosage: 400 MG, BID (SOMETIMED 4 DF/DAY)
     Route: 048

REACTIONS (6)
  - Memory impairment [Not Recovered/Not Resolved]
  - Pain [Recovered/Resolved with Sequelae]
  - Drug dependence [Unknown]
  - Amnesia [Unknown]
  - Trigeminal neuralgia [Not Recovered/Not Resolved]
  - Depression [Recovering/Resolving]
